FAERS Safety Report 16065262 (Version 1)
Quarter: 2019Q1

REPORT INFORMATION
  Report Type: Report from Study
  Country: ES (occurrence: ES)
  Receive Date: 20190313
  Receipt Date: 20190313
  Transmission Date: 20190418
  Serious: Yes (Other)
  Sender: FDA-Public Use
  Company Number: ES-SA-2019SA064504

PATIENT
  Sex: Male
  Weight: 95 kg

DRUGS (2)
  1. INSULIN GLARGINE [Suspect]
     Active Substance: INSULIN GLARGINE
     Indication: TYPE 2 DIABETES MELLITUS
     Dosage: 34 IU, QD (EVERY 24 HOURS)
     Route: 058
     Dates: start: 20181001
  2. NOVORAPID [Concomitant]
     Active Substance: INSULIN ASPART
     Indication: TYPE 2 DIABETES MELLITUS
     Dosage: AS PER REGIMEN
     Route: 058

REACTIONS (2)
  - Arthralgia [Not Recovered/Not Resolved]
  - Blood glucose increased [Not Recovered/Not Resolved]
